FAERS Safety Report 7380028-2 (Version None)
Quarter: 2011Q1

REPORT INFORMATION
  Report Type: 
  Country: None (occurrence: None)
  Receive Date: 20110329
  Receipt Date: 20110322
  Transmission Date: 20110831
  Serious: No
  Sender: FDA-Public Use
  Company Number: BE-BRISTOL-MYERS SQUIBB COMPANY-15573314

PATIENT
  Age: 71 Year
  Sex: Female
  Weight: 74 kg

DRUGS (8)
  1. ASAFLOW [Concomitant]
  2. ONGLYZA [Suspect]
     Indication: DIABETES MELLITUS
     Dosage: ADMINISTERD BETWEEN JULY AND DEC 2010,1 DF = 1TAB
     Dates: start: 20101207, end: 20101229
  3. CRESTOR [Concomitant]
     Dosage: GASTER10
     Dates: start: 20070327
  4. BISOPROLOL [Concomitant]
  5. D-CURE [Concomitant]
     Dosage: 1 DF = 1 AMPULE
  6. METFORMAX [Concomitant]
     Dosage: INCREASED FROM 500MG TO 850MG
     Dates: start: 20020101
  7. EXFORGE HCT [Concomitant]
     Dosage: EXFORGE HCT 10/160/25
     Dates: start: 20100923
  8. AMARYL [Concomitant]

REACTIONS (1)
  - PANCREATIC ENZYMES INCREASED [None]
